FAERS Safety Report 9227499 (Version 2)
Quarter: 2013Q3

REPORT INFORMATION
  Report Type: Spontaneous
  Country: BR (occurrence: BR)
  Receive Date: 20130412
  Receipt Date: 20130827
  Transmission Date: 20140515
  Serious: Yes (Other)
  Sender: FDA-Public Use
  Company Number: BR-ELI_LILLY_AND_COMPANY-BR201304000651

PATIENT
  Age: 80 Year
  Sex: Female
  Weight: 40 kg

DRUGS (3)
  1. FORTEO [Suspect]
     Indication: OSTEOPOROSIS
     Dosage: 20 UG, UNKNOWN
     Route: 065
     Dates: start: 201110
  2. PROLOPA [Concomitant]
     Indication: PARKINSON^S DISEASE
     Dosage: UNK, UNKNOWN
     Route: 065
     Dates: start: 201110
  3. TYLENOL                            /00020001/ [Concomitant]
     Indication: PAIN
     Dosage: UNK, UNKNOWN
     Route: 065

REACTIONS (4)
  - Breast mass [Not Recovered/Not Resolved]
  - Syncope [Unknown]
  - Breast haematoma [Not Recovered/Not Resolved]
  - Breast pain [Not Recovered/Not Resolved]
